FAERS Safety Report 5022297-X (Version None)
Quarter: 2006Q2

REPORT INFORMATION
  Report Type: 
  Country: None (occurrence: None)
  Receive Date: 20060609
  Receipt Date: 20060601
  Transmission Date: 20061013
  Serious: Yes (Hospitalization)
  Sender: FDA-Public Use
  Company Number: 2006/00571

PATIENT
  Age: 51 Year
  Sex: Male

DRUGS (1)
  1. ACYCLOVIR [Suspect]
     Indication: HERPES SIMPLEX
     Route: 065
     Dates: start: 20051201

REACTIONS (10)
  - ANAEMIA [None]
  - DYSAESTHESIA [None]
  - FACIAL PALSY [None]
  - HAEMOPTYSIS [None]
  - NEUROPATHY PERIPHERAL [None]
  - PAIN IN EXTREMITY [None]
  - PYREXIA [None]
  - RENAL FAILURE [None]
  - SINUSITIS [None]
  - WEGENER'S GRANULOMATOSIS [None]
